FAERS Safety Report 19730371 (Version 1)
Quarter: 2021Q3

REPORT INFORMATION
  Report Type: Report from Study
  Country: None (occurrence: US)
  Receive Date: 20210820
  Receipt Date: 20210820
  Transmission Date: 20211014
  Serious: Yes (Hospitalization, Other)
  Sender: FDA-Public Use
  Company Number: US-ABBVIE-21K-163-4033370-00

PATIENT
  Age: 55 Year
  Sex: Male
  Weight: 71.1 kg

DRUGS (4)
  1. VENCLEXTA [Suspect]
     Active Substance: VENETOCLAX
     Indication: MANTLE CELL LYMPHOMA
     Dosage: TAKE 20MG(2X10MG TABS) BY MOUTH EVERY DAY ON WEEK 1
     Route: 048
     Dates: start: 202107, end: 202108
  2. VENCLEXTA [Suspect]
     Active Substance: VENETOCLAX
     Dosage: 50MG(1X50MG TAB) DAILY BY MOUTH WEEK 2
     Route: 048
     Dates: start: 202108, end: 202108
  3. VENCLEXTA [Suspect]
     Active Substance: VENETOCLAX
     Dosage: 100MG(1X100MG TAB) BY MOUTH DAILY WEEK 3
     Route: 048
     Dates: start: 202108, end: 202108
  4. VENCLEXTA [Suspect]
     Active Substance: VENETOCLAX
     Dosage: 200MG(2X100MG TABS) DAILY WEEK 4
     Route: 048
     Dates: start: 202108

REACTIONS (4)
  - Lymphoma [Not Recovered/Not Resolved]
  - Blindness [Not Recovered/Not Resolved]
  - Swelling face [Not Recovered/Not Resolved]
  - Off label use [Not Recovered/Not Resolved]

NARRATIVE: CASE EVENT DATE: 202107
